FAERS Safety Report 9014570 (Version 1)
Quarter: 2013Q1

REPORT INFORMATION
  Report Type: Spontaneous
  Country: US (occurrence: US)
  Receive Date: 20130115
  Receipt Date: 20130115
  Transmission Date: 20140127
  Serious: No
  Sender: FDA-Public Use
  Company Number: US-NOVEN-12US005470

PATIENT
  Sex: Female

DRUGS (8)
  1. FENTANYL [Suspect]
     Indication: PAIN
     Dosage: 25 MCG/HR
     Route: 062
     Dates: start: 2012
  2. FENTANYL [Suspect]
     Dosage: 50 MCG/HR
     Route: 062
     Dates: start: 20120927, end: 2012
  3. FENTANYL [Suspect]
     Dosage: 25 MCG/HR
     Route: 062
     Dates: start: 201209, end: 20120927
  4. OXYCONTIN [Concomitant]
     Indication: PAIN
     Route: 048
  5. COUMADIN                           /00014802/ [Concomitant]
     Dosage: 5 MG, UNK
     Route: 048
  6. METOPROLOL [Concomitant]
     Dosage: 50 MG, UNK
     Route: 048
  7. MAGNESIUM [Concomitant]
     Route: 048
  8. FLECAINIDE [Concomitant]
     Route: 048

REACTIONS (5)
  - Heart rate increased [Not Recovered/Not Resolved]
  - Hyperhidrosis [Not Recovered/Not Resolved]
  - Nausea [Not Recovered/Not Resolved]
  - Drug administration error [Not Recovered/Not Resolved]
  - Product quality issue [Not Recovered/Not Resolved]
